APPROVED DRUG PRODUCT: DACARBAZINE
Active Ingredient: DACARBAZINE
Strength: 200MG/VIAL
Dosage Form/Route: INJECTABLE;INJECTION
Application: A075940 | Product #001
Applicant: HOSPIRA INC
Approved: Oct 18, 2001 | RLD: No | RS: No | Type: DISCN